FAERS Safety Report 17037446 (Version 1)
Quarter: 2019Q4

REPORT INFORMATION
  Report Type: Spontaneous
  Country: US (occurrence: US)
  Receive Date: 20191115
  Receipt Date: 20191115
  Transmission Date: 20200122
  Serious: No
  Sender: FDA-Public Use
  Company Number: US-BAYER-2019-205316

PATIENT
  Age: 82 Year
  Sex: Male
  Weight: 61 kg

DRUGS (1)
  1. ALEVE PM [Suspect]
     Active Substance: DIPHENHYDRAMINE HYDROCHLORIDE\NAPROXEN SODIUM
     Indication: PAIN
     Dosage: 1 DF
     Route: 048
     Dates: start: 201910, end: 20191111

REACTIONS (4)
  - Wrong technique in product usage process [None]
  - Feeling abnormal [Recovered/Resolved]
  - Oropharyngeal pain [Not Recovered/Not Resolved]
  - Foreign body in respiratory tract [Recovered/Resolved]

NARRATIVE: CASE EVENT DATE: 20191111
